FAERS Safety Report 5205733-5 (Version None)
Quarter: 2007Q1

REPORT INFORMATION
  Report Type: 
  Country: None (occurrence: None)
  Receive Date: 20070105
  Receipt Date: 20070105
  Transmission Date: 20070707
  Serious: Yes (Hospitalization)
  Sender: FDA-Public Use
  Company Number: None

PATIENT
  Sex: Male
  Weight: 65.318 kg

DRUGS (11)
  1. LITHIUM CARBONATE [Suspect]
     Indication: BIPOLAR DISORDER
     Dosage: 300 MG 1 QAM 2 QPM PO
     Route: 048
     Dates: start: 20060720, end: 20060920
  2. RISPERIDONE [Suspect]
     Indication: PSYCHOTIC DISORDER
     Dosage: 2 MG DAILY PO
     Route: 048
     Dates: start: 20060406, end: 20060901
  3. CALCIUM 500 MG WITH VITAMIN D [Concomitant]
  4. DOXAZOSIN MESYLATE [Concomitant]
  5. LORATADINE [Concomitant]
  6. OMEPRAZOLE [Concomitant]
  7. LITHIUM CARBONATE [Concomitant]
  8. METHYLPHENIDATE HCL [Concomitant]
  9. RISPERIDONE [Concomitant]
  10. TRAZODONE HCL [Concomitant]
  11. DISULFIRAM [Concomitant]

REACTIONS (3)
  - DRUG TOXICITY [None]
  - PARKINSONISM [None]
  - TREMOR [None]
